FAERS Safety Report 7112144-4 (Version None)
Quarter: 2010Q4

REPORT INFORMATION
  Report Type: 
  Country: None (occurrence: None)
  Receive Date: 20101119
  Receipt Date: 20100104
  Transmission Date: 20110411
  Serious: No
  Sender: FDA-Public Use
  Company Number: A0837394A

PATIENT
  Age: 73 Year
  Sex: Male

DRUGS (3)
  1. AVODART [Suspect]
     Dosage: .5MG PER DAY
     Route: 048
     Dates: start: 20091001
  2. PLAVIX [Concomitant]
  3. METOPROLOL [Concomitant]

REACTIONS (3)
  - DYSPHAGIA [None]
  - THROAT IRRITATION [None]
  - THROAT LESION [None]
